FAERS Safety Report 5944723-1 (Version None)
Quarter: 2008Q4

REPORT INFORMATION
  Report Type: 
  Country: None (occurrence: None)
  Receive Date: 20081107
  Receipt Date: 20081029
  Transmission Date: 20090506
  Serious: Yes (Hospitalization)
  Sender: FDA-Public Use
  Company Number: GB-ROCHE-594304

PATIENT
  Sex: Female

DRUGS (2)
  1. ORLISTAT [Suspect]
     Indication: OBESITY
     Route: 048
     Dates: start: 20080415, end: 20080925
  2. ORLISTAT [Suspect]
     Route: 048
     Dates: start: 20081020

REACTIONS (1)
  - MYOCARDIAL INFARCTION [None]
